FAERS Safety Report 24876300 (Version 6)
Quarter: 2025Q1

REPORT INFORMATION
  Report Type: Spontaneous
  Country: AR (occurrence: AR)
  Receive Date: 20250123
  Receipt Date: 20250326
  Transmission Date: 20250408
  Serious: Yes (Hospitalization, Other)
  Sender: SANDOZ
  Company Number: AR-002147023-NVSC2024AR006351

PATIENT
  Age: 57 Year
  Sex: Female
  Weight: 62 kg

DRUGS (10)
  1. FULVESTRANT [Suspect]
     Active Substance: FULVESTRANT
     Dosage: 500 MG, (2 X 250 MG) 21D
     Route: 065
     Dates: start: 20231213
  2. FULVESTRANT [Suspect]
     Active Substance: FULVESTRANT
     Indication: Breast cancer metastatic
     Route: 042
     Dates: start: 20231213
  3. FULVESTRANT [Suspect]
     Active Substance: FULVESTRANT
     Indication: Breast cancer metastatic
     Route: 030
  4. KISQALI [Suspect]
     Active Substance: RIBOCICLIB
     Dosage: 600 MG, QD
     Route: 048
     Dates: start: 20240801, end: 20240805
  5. KISQALI [Suspect]
     Active Substance: RIBOCICLIB
     Dosage: 600 MG, QD
     Route: 048
     Dates: start: 20231213
  6. KISQALI [Suspect]
     Active Substance: RIBOCICLIB
     Indication: Breast cancer metastatic
     Dosage: 600 MG, QD
     Route: 048
     Dates: start: 20231113
  7. KISQALI [Suspect]
     Active Substance: RIBOCICLIB
     Route: 048
  8. KISQALI [Suspect]
     Active Substance: RIBOCICLIB
     Dosage: 3 DOSAGE FORM (200 MG), QD
     Route: 048
  9. KISQALI [Suspect]
     Active Substance: RIBOCICLIB
     Dosage: 600 MG, QD
     Route: 048
  10. KISQALI [Suspect]
     Active Substance: RIBOCICLIB
     Route: 048
     Dates: start: 20231127

REACTIONS (43)
  - Breast cancer recurrent [Recovered/Resolved]
  - Breast cancer recurrent [Recovering/Resolving]
  - Weight abnormal [Unknown]
  - Pain [Unknown]
  - Neoplasm malignant [Unknown]
  - Cerebrovascular accident [Recovered/Resolved with Sequelae]
  - Metastases to lymph nodes [Unknown]
  - Metastases to thorax [Unknown]
  - Hepatic neoplasm [Unknown]
  - Metastases to bone [Unknown]
  - Crying [Unknown]
  - Aphonia [Unknown]
  - Blister [Unknown]
  - Fear [Unknown]
  - Mobility decreased [Unknown]
  - Fall [Recovered/Resolved]
  - Head injury [Recovered/Resolved]
  - Neoplasm [Unknown]
  - Neoplasm skin [Unknown]
  - Decreased immune responsiveness [Unknown]
  - Nasal congestion [Unknown]
  - Eye swelling [Unknown]
  - Upper-airway cough syndrome [Unknown]
  - Dysphagia [Unknown]
  - Hypotension [Recovered/Resolved]
  - Constipation [Unknown]
  - Oropharyngeal pain [Unknown]
  - Alopecia [Unknown]
  - Cellulitis [Unknown]
  - Herpes zoster [Unknown]
  - Dry skin [Unknown]
  - Pruritus [Unknown]
  - Groin pain [Unknown]
  - Vomiting [Unknown]
  - Nasopharyngitis [Unknown]
  - Fatigue [Unknown]
  - Hypersensitivity [Unknown]
  - Pruritus [Unknown]
  - Pain in extremity [Unknown]
  - Pyrexia [Unknown]
  - Decreased appetite [Unknown]
  - Nausea [Unknown]
  - Inappropriate schedule of product administration [Unknown]

NARRATIVE: CASE EVENT DATE: 20240701
